FAERS Safety Report 9182026 (Version 1)
Quarter: 2013Q1

REPORT INFORMATION
  Report Type: Spontaneous
  Country: US (occurrence: None)
  Receive Date: 20130321
  Receipt Date: 20130321
  Transmission Date: 20140127
  Serious: No
  Sender: FDA-Public Use
  Company Number: None

PATIENT
  Age: 31 Year
  Sex: Female

DRUGS (2)
  1. VIVITROL [Suspect]
     Route: 030
     Dates: start: 20130319
  2. VIVITROL [Suspect]
     Route: 030
     Dates: start: 20130319

REACTIONS (5)
  - Anxiety [None]
  - Flushing [None]
  - Palpitations [None]
  - Tachycardia [None]
  - Nausea [None]
